FAERS Safety Report 25099256 (Version 1)
Quarter: 2025Q1

REPORT INFORMATION
  Report Type: Spontaneous
  Country: PR (occurrence: PR)
  Receive Date: 20250320
  Receipt Date: 20250320
  Transmission Date: 20250408
  Serious: No
  Sender: BRISTOL-MYERS SQUIBB COMPANY
  Company Number: PR-BRISTOL-MYERS SQUIBB COMPANY-2025-040640

PATIENT
  Age: 80 Year
  Sex: Female
  Weight: 41.28 kg

DRUGS (1)
  1. POMALYST [Suspect]
     Active Substance: POMALIDOMIDE
     Indication: Plasma cell myeloma
     Dosage: FREQUENCY: 1 CAP DA DAYS AND 7 DAYS OF
     Route: 048
     Dates: start: 20250221

REACTIONS (1)
  - Dysuria [Unknown]
